FAERS Safety Report 5648929-0 (Version None)
Quarter: 2008Q1

REPORT INFORMATION
  Report Type: 
  Country: None (occurrence: None)
  Receive Date: 20080303
  Receipt Date: 20080303
  Transmission Date: 20080703
  Serious: No
  Sender: FDA-Public Use
  Company Number: None

PATIENT
  Age: 71 Year
  Sex: Male
  Weight: 79.3795 kg

DRUGS (1)
  1. METFORMIN HCL [Suspect]
     Indication: GLUCOSE TOLERANCE IMPAIRED
     Dosage: %00 MG ONE PER DAY
     Dates: start: 20080129, end: 20080201

REACTIONS (1)
  - BLOOD GLUCOSE INCREASED [None]
